FAERS Safety Report 7594177-7 (Version None)
Quarter: 2011Q3

REPORT INFORMATION
  Report Type: 
  Country: None (occurrence: None)
  Receive Date: 20110706
  Receipt Date: 20110628
  Transmission Date: 20111222
  Serious: Yes (Hospitalization, Other)
  Sender: FDA-Public Use
  Company Number: PHHY2010JP76736

PATIENT
  Sex: Male
  Weight: 79 kg

DRUGS (6)
  1. BETAMETHASONE [Concomitant]
     Indication: ACQUIRED EPIDERMOLYSIS BULLOSA
     Route: 048
  2. CYCLOPHOSPHAMIDE [Concomitant]
     Indication: ACQUIRED EPIDERMOLYSIS BULLOSA
     Route: 048
  3. COLCHICINE [Concomitant]
     Indication: ACQUIRED EPIDERMOLYSIS BULLOSA
     Route: 048
  4. NEORAL [Suspect]
     Dosage: 100 MG,DAILY
     Route: 048
     Dates: start: 20090420, end: 20090427
  5. STEROIDS NOS [Concomitant]
  6. NEORAL [Suspect]
     Indication: ACQUIRED EPIDERMOLYSIS BULLOSA
     Dosage: 150 MG, DAILY, 3 DVIDED DOSES
     Route: 048
     Dates: start: 20080724, end: 20080801

REACTIONS (8)
  - DIABETES MELLITUS [None]
  - HEPATIC FUNCTION ABNORMAL [None]
  - MUCOSAL EROSION [None]
  - ALANINE AMINOTRANSFERASE INCREASED [None]
  - BLISTER [None]
  - ASPARTATE AMINOTRANSFERASE INCREASED [None]
  - BLOOD ALKALINE PHOSPHATASE INCREASED [None]
  - OESOPHAGEAL ULCER HAEMORRHAGE [None]
